FAERS Safety Report 6863586-3 (Version None)
Quarter: 2010Q3

REPORT INFORMATION
  Report Type: 
  Country: None (occurrence: None)
  Receive Date: 20100721
  Receipt Date: 20080303
  Transmission Date: 20110219
  Serious: No
  Sender: FDA-Public Use
  Company Number: US-PFIZER INC-2008022186

PATIENT
  Sex: Male
  Weight: 87.1 kg

DRUGS (2)
  1. CHANTIX [Suspect]
     Indication: SMOKING CESSATION THERAPY
     Dates: start: 20080201, end: 20080228
  2. XANAX [Suspect]
     Indication: STRESS
     Dates: start: 20080228

REACTIONS (12)
  - ABDOMINAL DISTENSION [None]
  - ASTHENIA [None]
  - CONSTIPATION [None]
  - DISORIENTATION [None]
  - DISSOCIATION [None]
  - DYSPNOEA [None]
  - ERECTILE DYSFUNCTION [None]
  - FATIGUE [None]
  - FLATULENCE [None]
  - NIGHTMARE [None]
  - PRODUCTIVE COUGH [None]
  - UNEVALUABLE EVENT [None]
